FAERS Safety Report 4302896-0 (Version None)
Quarter: 2004Q1

REPORT INFORMATION
  Report Type: 
  Country: None (occurrence: None)
  Receive Date: 20040220
  Receipt Date: 20040205
  Transmission Date: 20041129
  Serious: Yes (Other)
  Sender: FDA-Public Use
  Company Number: NSADSS2003017755

PATIENT
  Age: 45 Year
  Sex: Female
  Weight: 172.5 kg

DRUGS (4)
  1. REMICADE [Suspect]
     Indication: RHEUMATOID ARTHRITIS
     Dosage: 1 IN 1 AS NECESSARY, INTRAVENOUS DRIP
     Route: 041
  2. ARAVA [Concomitant]
  3. ENBREL [Concomitant]
  4. METHOTREXATE [Concomitant]

REACTIONS (1)
  - AUTOIMMUNE HEPATITIS [None]
